FAERS Safety Report 8369730-3 (Version None)
Quarter: 2012Q2

REPORT INFORMATION
  Report Type: 
  Country: None (occurrence: None)
  Receive Date: 20120518
  Receipt Date: 20120509
  Transmission Date: 20120825
  Serious: Yes (Other)
  Sender: FDA-Public Use
  Company Number: SI-UCBSA-055613

PATIENT
  Age: 54 Year
  Sex: Female
  Weight: 82 kg

DRUGS (7)
  1. LEFLUNOMIDE [Concomitant]
     Indication: RHEUMATOID ARTHRITIS
  2. FOLIC ACID [Concomitant]
  3. METHOTREXATE [Concomitant]
     Indication: RHEUMATOID ARTHRITIS
     Dosage: 20000 MG/WEEK
  4. LANZUL [Concomitant]
  5. METHOTREXATE [Concomitant]
  6. CIMZIA [Suspect]
     Indication: RHEUMATOID ARTHRITIS
     Route: 058
     Dates: start: 20120123
  7. NAKLOFEN DUO [Concomitant]
     Dosage: 75 MG PP

REACTIONS (1)
  - OTITIS MEDIA [None]
